FAERS Safety Report 23634709 (Version 1)
Quarter: 2024Q1

REPORT INFORMATION
  Report Type: Report from Study
  Country: US (occurrence: US)
  Receive Date: 20240315
  Receipt Date: 20240315
  Transmission Date: 20240409
  Serious: Yes (Other)
  Sender: FDA-Public Use
  Company Number: US-JNJFOC-20240318962

PATIENT
  Age: 52 Year
  Sex: Female

DRUGS (1)
  1. SPRAVATO [Suspect]
     Active Substance: ESKETAMINE
     Indication: Depression
     Dosage: STARTED /SEP/OCT/2023
     Dates: start: 2023

REACTIONS (2)
  - Suicidal ideation [Unknown]
  - Panic attack [Unknown]
